FAERS Safety Report 6857987-7 (Version None)
Quarter: 2010Q3

REPORT INFORMATION
  Report Type: 
  Country: None (occurrence: None)
  Receive Date: 20100719
  Receipt Date: 20100719
  Transmission Date: 20110219
  Serious: No
  Sender: FDA-Public Use
  Company Number: None

PATIENT

DRUGS (1)
  1. FIBRIN SEALANT NOS [Suspect]

REACTIONS (1)
  - LIQUID PRODUCT PHYSICAL ISSUE [None]
